FAERS Safety Report 22391003 (Version 1)
Quarter: 2023Q2

REPORT INFORMATION
  Report Type: Spontaneous
  Country: RU (occurrence: None)
  Receive Date: 20230601
  Receipt Date: 20230601
  Transmission Date: 20230722
  Serious: Yes (Other)
  Sender: FDA-Public Use
  Company Number: RU-ROCHE-3356051

PATIENT
  Sex: Female

DRUGS (6)
  1. TRASTUZUMAB [Suspect]
     Active Substance: TRASTUZUMAB
     Indication: Breast cancer stage II
     Route: 065
     Dates: start: 201902, end: 201912
  2. TRASTUZUMAB [Suspect]
     Active Substance: TRASTUZUMAB
     Route: 065
     Dates: start: 20221013
  3. PERTUZUMAB [Suspect]
     Active Substance: PERTUZUMAB
     Indication: Breast cancer stage II
     Route: 065
     Dates: start: 20221013
  4. DOCETAXEL [Suspect]
     Active Substance: DOCETAXEL
     Indication: Breast cancer stage II
     Route: 065
     Dates: start: 20221013
  5. DENOSUMAB [Suspect]
     Active Substance: DENOSUMAB
     Indication: Breast cancer stage II
     Route: 065
  6. TAMOXIFEN [Suspect]
     Active Substance: TAMOXIFEN
     Indication: Breast cancer stage II
     Route: 065
     Dates: start: 201902

REACTIONS (8)
  - Metastases to liver [Unknown]
  - Metastases to bone [Unknown]
  - Metastases to pleura [Unknown]
  - Metastases to spine [Unknown]
  - Neutropenia [Unknown]
  - Metastases to lymph nodes [Unknown]
  - Cough [Unknown]
  - Bone pain [Unknown]

NARRATIVE: CASE EVENT DATE: 20220801
